FAERS Safety Report 14512058 (Version 3)
Quarter: 2018Q1

REPORT INFORMATION
  Report Type: Spontaneous
  Country: CH (occurrence: CH)
  Receive Date: 20180209
  Receipt Date: 20180302
  Transmission Date: 20180509
  Serious: Yes (Other)
  Sender: FDA-Public Use
  Company Number: CH-BAYER-2018-022000

PATIENT
  Sex: Female

DRUGS (4)
  1. MAGNOGRAF [Suspect]
     Active Substance: GADOPENTETATE DIMEGLUMINE
     Dosage: UNK UNK, ONCE
     Route: 042
  2. GADOVIST [Suspect]
     Active Substance: GADOBUTROL
     Dosage: UNK UNK, ONCE
     Route: 042
  3. DOTAREM [Suspect]
     Active Substance: GADOTERATE MEGLUMINE
  4. MULTIHANCE [Suspect]
     Active Substance: GADOBENATE DIMEGLUMINE

REACTIONS (3)
  - Therapeutic product cross-reactivity [None]
  - Contrast media allergy [None]
  - Contrast media reaction [None]
